FAERS Safety Report 6590466-3 (Version None)
Quarter: 2010Q1

REPORT INFORMATION
  Report Type: 
  Country: None (occurrence: None)
  Receive Date: 20100203
  Receipt Date: 20091005
  Transmission Date: 20100710
  Serious: No
  Sender: FDA-Public Use
  Company Number: 2009-00642

PATIENT
  Age: 51 Year

DRUGS (2)
  1. ZICAM COLD REMEDY NASAL GEL [Suspect]
     Dosage: COLD SYMPTOMS; ^SEVERAL YEARS^
  2. ZICAM COLD REMEDY NASAL GEL [Suspect]

REACTIONS (2)
  - AGEUSIA [None]
  - ANOSMIA [None]
